FAERS Safety Report 4638915-1 (Version None)
Quarter: 2005Q2

REPORT INFORMATION
  Report Type: 
  Country: None (occurrence: None)
  Receive Date: 20050419
  Receipt Date: 20041008
  Transmission Date: 20051028
  Serious: Yes (Death, Life-Threatening, Hospitalization)
  Sender: FDA-Public Use
  Company Number: PHBS2004JP13562

PATIENT
  Age: 69 Year
  Sex: Male
  Weight: 70 kg

DRUGS (7)
  1. ADALAT [Concomitant]
     Dosage: 40 MG/D
     Route: 048
     Dates: start: 20040701, end: 20041020
  2. PREDNISOLONE [Concomitant]
     Dosage: 10-50-40-30 MG/DAY
     Dates: start: 20040902, end: 20041010
  3. GASTER D [Concomitant]
     Dosage: 40 MG/DAY
     Route: 048
     Dates: start: 20040902, end: 20040928
  4. GRAN [Concomitant]
     Dosage: 75 UG/D
     Route: 058
     Dates: start: 20040921, end: 20040922
  5. NEORAL [Suspect]
     Indication: MYELODYSPLASTIC SYNDROME
     Dosage: 400 MG/D
     Route: 048
     Dates: start: 20040917, end: 20040928
  6. NEORAL [Suspect]
     Dosage: 200 MG/DAY
     Route: 048
     Dates: start: 20040901, end: 20040901
  7. LYMPHOGLOBULINE [Suspect]
     Indication: MYELODYSPLASTIC SYNDROME
     Dosage: 1 G/DAY
     Dates: start: 20040917, end: 20040921

REACTIONS (25)
  - BLOOD ALBUMIN DECREASED [None]
  - BLOOD CREATINE PHOSPHOKINASE INCREASED [None]
  - BLOOD CREATININE INCREASED [None]
  - BLOOD LACTATE DEHYDROGENASE INCREASED [None]
  - BLOOD UREA INCREASED [None]
  - C-REACTIVE PROTEIN INCREASED [None]
  - DIFFICULTY IN WALKING [None]
  - DISEASE PROGRESSION [None]
  - DYSSTASIA [None]
  - HEPATIC ENZYME INCREASED [None]
  - HEPATIC FAILURE [None]
  - HERPES SIMPLEX [None]
  - HYPOREFLEXIA [None]
  - HYPOVOLAEMIA [None]
  - INFECTION [None]
  - LEUKOPENIA [None]
  - MULTI-ORGAN FAILURE [None]
  - MUSCULAR WEAKNESS [None]
  - MYELODYSPLASTIC SYNDROME [None]
  - NERVE INJURY [None]
  - NEUROPATHY PERIPHERAL [None]
  - OEDEMA PERIPHERAL [None]
  - PANCYTOPENIA [None]
  - RENAL IMPAIRMENT [None]
  - SHOCK [None]
